FAERS Safety Report 7590153-9 (Version None)
Quarter: 2011Q3

REPORT INFORMATION
  Report Type: 
  Country: None (occurrence: None)
  Receive Date: 20110705
  Receipt Date: 20110628
  Transmission Date: 20111222
  Serious: Yes (Hospitalization)
  Sender: FDA-Public Use
  Company Number: B0730828A

PATIENT
  Age: 68 Year
  Sex: Male
  Weight: 54 kg

DRUGS (1)
  1. PAROXETINE HCL [Suspect]
     Route: 048

REACTIONS (4)
  - UNDERWEIGHT [None]
  - DIARRHOEA [None]
  - COLITIS [None]
  - MALNUTRITION [None]
